FAERS Safety Report 5007287-5 (Version None)
Quarter: 2006Q2

REPORT INFORMATION
  Report Type: 
  Country: None (occurrence: None)
  Receive Date: 20060519
  Receipt Date: 20060519
  Transmission Date: 20061013
  Serious: Yes (Other)
  Sender: FDA-Public Use
  Company Number: None

PATIENT
  Sex: Female
  Weight: 61.2356 kg

DRUGS (1)
  1. AVONEX [Suspect]
     Indication: MULTIPLE SCLEROSIS
     Dosage: 30MG X1 WEEK IM
     Route: 030
     Dates: start: 20031101

REACTIONS (2)
  - BASAL CELL CARCINOMA [None]
  - MALIGNANT NEOPLASM PROGRESSION [None]
